FAERS Safety Report 5946576-4 (Version None)
Quarter: 2008Q4

REPORT INFORMATION
  Report Type: 
  Country: None (occurrence: None)
  Receive Date: 20081110
  Receipt Date: 20081103
  Transmission Date: 20090506
  Serious: Yes (Hospitalization, Other)
  Sender: FDA-Public Use
  Company Number: US-ELI_LILLY_AND_COMPANY-US200811000590

PATIENT
  Age: 61 Year
  Sex: Female

DRUGS (11)
  1. HUMALOG [Suspect]
     Indication: TYPE 2 DIABETES MELLITUS
     Dosage: 45 U, 2/D
  2. DARVOCET-N 100 [Concomitant]
     Indication: MIGRAINE
     Dosage: UNK, AS NEEDED
  3. NEURONTIN [Concomitant]
     Dosage: UNK, EACH MORNING
  4. NEURONTIN [Concomitant]
     Dosage: UNK, EACH EVENING
  5. DIOVAN [Concomitant]
     Indication: HYPERTENSION
     Dosage: UNK, DAILY (1/D)
  6. DIAZEPAM [Concomitant]
     Indication: SLEEP DISORDER
     Dosage: UNK, AS NEEDED
  7. KLONOPIN [Concomitant]
     Indication: AGITATION
     Dosage: UNK, 3/D
  8. PLAVIX [Concomitant]
     Indication: MIGRAINE
     Dates: start: 20080101
  9. AMITRIPTYLINE HCL [Concomitant]
     Indication: SLEEP DISORDER
     Dosage: UNK, EACH EVENING
  10. CLONIDINE [Concomitant]
     Indication: BLOOD PRESSURE
  11. TIZANIDINE HCL [Concomitant]
     Indication: MUSCLE RELAXANT THERAPY

REACTIONS (6)
  - BLOOD CHOLESTEROL INCREASED [None]
  - CEREBROVASCULAR ACCIDENT [None]
  - FUNGAL INFECTION [None]
  - LOSS OF CONSCIOUSNESS [None]
  - STRESS [None]
  - TRANSIENT ISCHAEMIC ATTACK [None]
